FAERS Safety Report 8413910-5 (Version None)
Quarter: 2012Q2

REPORT INFORMATION
  Report Type: 
  Country: None (occurrence: None)
  Receive Date: 20120323
  Receipt Date: 20110802
  Transmission Date: 20120825
  Serious: Yes (Other)
  Sender: FDA-Public Use
  Company Number: 163-21880-11051501

PATIENT

DRUGS (1)
  1. LENALIDOMIDE [Suspect]
     Indication: HAEMATOLOGICAL MALIGNANCY
     Dosage: 5-25 MG, PO
     Route: 048

REACTIONS (2)
  - BONE MARROW FAILURE [None]
  - DRUG INEFFECTIVE [None]
